FAERS Safety Report 21217361 (Version 1)
Quarter: 2022Q3

REPORT INFORMATION
  Report Type: Spontaneous
  Country: None (occurrence: US)
  Receive Date: 20220816
  Receipt Date: 20220816
  Transmission Date: 20221027
  Serious: No
  Sender: FDA-Public Use
  Company Number: US-Breckenridge Pharmaceutical, Inc.-2131929

PATIENT
  Age: 80 Year
  Sex: Female
  Weight: 68.182 kg

DRUGS (1)
  1. AZELASTINE HYDROCHLORIDE [Suspect]
     Active Substance: AZELASTINE HYDROCHLORIDE
     Indication: Sinusitis
     Route: 045

REACTIONS (4)
  - Dry mouth [Unknown]
  - Dry throat [Unknown]
  - Laryngitis [Unknown]
  - Throat irritation [Unknown]
